FAERS Safety Report 8239827-7 (Version None)
Quarter: 2012Q1

REPORT INFORMATION
  Report Type: 
  Country: None (occurrence: None)
  Receive Date: 20120328
  Receipt Date: 20120316
  Transmission Date: 20120608
  Serious: Yes (Other)
  Sender: FDA-Public Use
  Company Number: PHHY2012AR024001

PATIENT
  Sex: Male

DRUGS (1)
  1. EXELON [Suspect]
     Indication: DISORIENTATION
     Dosage: 3 MG, BID
     Route: 048
     Dates: start: 20110101

REACTIONS (1)
  - DIABETES MELLITUS INADEQUATE CONTROL [None]
